FAERS Safety Report 7308671-7 (Version None)
Quarter: 2011Q1

REPORT INFORMATION
  Report Type: 
  Country: None (occurrence: None)
  Receive Date: 20110211
  Receipt Date: 20110204
  Transmission Date: 20110831
  Serious: Yes (Death)
  Sender: FDA-Public Use
  Company Number: DSA_44890 _2011

PATIENT
  Sex: Female

DRUGS (2)
  1. XENAZINE [Suspect]
     Indication: MOVEMENT DISORDER
     Dosage: (12.5 MG BID ORAL)
     Route: 048
     Dates: start: 20100420, end: 20101210
  2. XENAZINE [Suspect]
     Indication: EXTRAPYRAMIDAL DISORDER
     Dosage: (12.5 MG BID ORAL)
     Route: 048
     Dates: start: 20100420, end: 20101210

REACTIONS (1)
  - DEATH [None]
